FAERS Safety Report 8844092 (Version 1)
Quarter: 2012Q4

REPORT INFORMATION
  Report Type: 
  Country: US (occurrence: US)
  Receive Date: 20121016
  Receipt Date: 20121016
  Transmission Date: 20130627
  Serious: Yes (Hospitalization)
  Sender: FDA-Public Use
  Company Number: US-BAYER-2012-106318

PATIENT
  Age: 43 Year

DRUGS (4)
  1. YASMIN [Suspect]
     Indication: MENSTRUAL CYCLE MANAGEMENT
  2. LEXAPRO [Concomitant]
  3. ALBUTEROL [Concomitant]
  4. PROAIR INHALER [Concomitant]

REACTIONS (1)
  - Pulmonary embolism [None]
